FAERS Safety Report 5390945-0 (Version None)
Quarter: 2007Q3

REPORT INFORMATION
  Report Type: 
  Country: None (occurrence: None)
  Receive Date: 20070717
  Receipt Date: 20070629
  Transmission Date: 20080115
  Serious: Yes (Other)
  Sender: FDA-Public Use
  Company Number: 157339USA

PATIENT
  Sex: Male

DRUGS (7)
  1. MERCAPTOPURINE [Suspect]
     Indication: B-CELL TYPE ACUTE LEUKAEMIA
  2. CYCLOPHOSPHAMIDE [Suspect]
     Indication: B-CELL TYPE ACUTE LEUKAEMIA
  3. PREDNISONE [Suspect]
     Indication: B-CELL TYPE ACUTE LEUKAEMIA
  4. VINCRISTINE [Suspect]
     Indication: B-CELL TYPE ACUTE LEUKAEMIA
  5. ASPARAGINASE [Suspect]
     Indication: B-CELL TYPE ACUTE LEUKAEMIA
  6. DAUNORUBICIN HCL [Suspect]
     Indication: B-CELL TYPE ACUTE LEUKAEMIA
  7. METHOTREXATE [Suspect]

REACTIONS (2)
  - DYSPLASTIC NAEVUS SYNDROME [None]
  - MALIGNANT MELANOMA IN SITU [None]
